FAERS Safety Report 7197511-5 (Version None)
Quarter: 2010Q4

REPORT INFORMATION
  Report Type: 
  Country: None (occurrence: None)
  Receive Date: 20101227
  Receipt Date: 20101217
  Transmission Date: 20110411
  Serious: Yes (Hospitalization)
  Sender: FDA-Public Use
  Company Number: US-ASTELLAS-2010US005139

PATIENT

DRUGS (1)
  1. PROGRAF [Suspect]
     Indication: LIVER TRANSPLANT
     Dosage: 3 MG, UID/QD
     Route: 048
     Dates: start: 20090129

REACTIONS (4)
  - DEHYDRATION [None]
  - LABORATORY TEST ABNORMAL [None]
  - LIVER TRANSPLANT REJECTION [None]
  - RENAL IMPAIRMENT [None]
